FAERS Safety Report 8928836 (Version 1)
Quarter: 2012Q4

REPORT INFORMATION
  Report Type: 
  Country: JP (occurrence: JP)
  Receive Date: 20121128
  Receipt Date: 20121128
  Transmission Date: 20130627
  Serious: Yes (Other)
  Sender: FDA-Public Use
  Company Number: JP-009507513-2012SP028330

PATIENT
  Age: 71 Year
  Sex: Female
  Weight: 66 kg

DRUGS (4)
  1. REBETOL [Suspect]
     Indication: CHRONIC HEPATITIS C
     Dosage: 600 mg, QD
     Route: 048
     Dates: start: 20120402, end: 20120415
  2. REBETOL [Suspect]
     Dosage: 400 mg, QD
     Route: 048
     Dates: start: 20120416, end: 20120507
  3. TELAVIC [Suspect]
     Indication: CHRONIC HEPATITIS C
     Dosage: 1500 mg, QD
     Route: 048
     Dates: start: 20120402, end: 20120507
  4. PEGINTRON [Suspect]
     Indication: CHRONIC HEPATITIS C
     Dosage: 1.5 Microgram per kilogram, qw
     Route: 058
     Dates: start: 20120402, end: 20120423

REACTIONS (2)
  - Hyperuricaemia [Recovered/Resolved]
  - Anaemia [Not Recovered/Not Resolved]
